FAERS Safety Report 5635477-7 (Version None)
Quarter: 2008Q1

REPORT INFORMATION
  Report Type: 
  Country: None (occurrence: None)
  Receive Date: 20080222
  Receipt Date: 20080214
  Transmission Date: 20080703
  Serious: Yes (Death, Hospitalization, Other)
  Sender: FDA-Public Use
  Company Number: JP-BAYER-200810115BYL

PATIENT
  Age: 34 Year
  Sex: Male

DRUGS (2)
  1. CAMPATH [Suspect]
     Indication: BONE MARROW CONDITIONING REGIMEN
     Route: 042
     Dates: start: 20071124, end: 20071129
  2. FLUDARA [Concomitant]
     Indication: BONE MARROW CONDITIONING REGIMEN
     Route: 042
     Dates: start: 20071128, end: 20071201

REACTIONS (3)
  - ADENOVIRUS INFECTION [None]
  - BLOOD STEM CELL TRANSPLANT FAILURE [None]
  - ENGRAFTMENT SYNDROME [None]
